FAERS Safety Report 15247845 (Version 1)
Quarter: 2018Q3

REPORT INFORMATION
  Report Type: Spontaneous
  Country: US (occurrence: US)
  Receive Date: 20180807
  Receipt Date: 20180807
  Transmission Date: 20181010
  Serious: Yes (Other)
  Sender: FDA-Public Use
  Company Number: US-ACCORD-070469

PATIENT
  Age: 41 Year
  Sex: Female
  Weight: 79.38 kg

DRUGS (1)
  1. QUETIAPINE FUMARATE ACCORD [Suspect]
     Active Substance: QUETIAPINE FUMARATE
     Indication: BIPOLAR DISORDER
     Dosage: STRENGTH: 200 MG?DOSE: 200 MG FOUR TIMES A NIGHT
     Route: 048
     Dates: end: 20180717

REACTIONS (12)
  - Abortion spontaneous [Unknown]
  - Negative thoughts [Recovered/Resolved]
  - Withdrawal syndrome [Unknown]
  - Suicidal ideation [Recovered/Resolved]
  - Libido increased [Recovered/Resolved]
  - Maternal exposure during pregnancy [Unknown]
  - Anxiety [Unknown]
  - Mania [Recovered/Resolved]
  - Drug ineffective [Unknown]
  - Aggression [Unknown]
  - Insomnia [Not Recovered/Not Resolved]
  - Depression [Unknown]

NARRATIVE: CASE EVENT DATE: 201307
